FAERS Safety Report 7225654-6 (Version None)
Quarter: 2011Q1

REPORT INFORMATION
  Report Type: 
  Country: None (occurrence: None)
  Receive Date: 20110107
  Receipt Date: 20110107
  Transmission Date: 20110831
  Serious: Yes (Hospitalization)
  Sender: FDA-Public Use
  Company Number: None

PATIENT
  Age: 48 Year
  Sex: Male

DRUGS (7)
  1. AZITHROMYCIN [Concomitant]
  2. COUMADIN [Concomitant]
  3. ABACAVIR [Concomitant]
  4. LAMIVUDINE (EPIVIR HBV) [Concomitant]
  5. DAPSONE [Concomitant]
  6. THALIDOMIDE [Suspect]
     Indication: APHTHOUS STOMATITIS
     Dosage: 100MG QDAY PO
     Route: 048
     Dates: start: 20101020, end: 20101108
  7. NEVIRAPINE [Concomitant]

REACTIONS (1)
  - DEEP VEIN THROMBOSIS [None]
